FAERS Safety Report 6169364-5 (Version None)
Quarter: 2009Q2

REPORT INFORMATION
  Report Type: 
  Country: None (occurrence: None)
  Receive Date: 20090424
  Receipt Date: 20090129
  Transmission Date: 20091009
  Serious: No
  Sender: FDA-Public Use
  Company Number: PYLE-2009-001

PATIENT
  Age: 67 Year
  Sex: Female

DRUGS (7)
  1. PYLERA [Suspect]
     Indication: HELICOBACTER INFECTION
     Dosage: 3 CAPS QID PO
     Route: 048
     Dates: start: 20090123
  2. ZANTAC 150 [Concomitant]
  3. CARAFATE [Concomitant]
  4. AVAPRO [Concomitant]
  5. LIPITOR [Concomitant]
  6. TOPROL-XL [Concomitant]
  7. CALCIUM [Concomitant]

REACTIONS (2)
  - FAECES DISCOLOURED [None]
  - FATIGUE [None]
